FAERS Safety Report 5609488-1 (Version None)
Quarter: 2008Q1

REPORT INFORMATION
  Report Type: 
  Country: None (occurrence: None)
  Receive Date: 20080131
  Receipt Date: 20080116
  Transmission Date: 20080703
  Serious: Yes (Hospitalization)
  Sender: FDA-Public Use
  Company Number: AT-AMGEN-UK262786

PATIENT
  Sex: Female

DRUGS (4)
  1. PANITUMUMAB [Suspect]
     Indication: COLORECTAL CANCER
     Route: 041
     Dates: start: 20071120, end: 20071228
  2. IRINOTECAN [Concomitant]
     Dates: start: 20071120
  3. LEUCOVORIN CALCIUM [Concomitant]
     Dates: start: 20071120
  4. FLUOROURACIL [Concomitant]
     Dates: start: 20071120

REACTIONS (3)
  - PORTAL VEIN THROMBOSIS [None]
  - PULMONARY EMBOLISM [None]
  - THROMBOSIS [None]
